FAERS Safety Report 5513942-0 (Version None)
Quarter: 2007Q4

REPORT INFORMATION
  Report Type: 
  Country: None (occurrence: None)
  Receive Date: 20071113
  Receipt Date: 20071102
  Transmission Date: 20080405
  Serious: Yes (Other)
  Sender: FDA-Public Use
  Company Number: SE-BRISTOL-MYERS SQUIBB COMPANY-13976386

PATIENT
  Sex: Male

DRUGS (5)
  1. VIDEX [Suspect]
     Indication: HIV INFECTION
  2. ZIAGEN [Suspect]
     Indication: HIV INFECTION
  3. VIRAMUNE [Suspect]
     Indication: HIV INFECTION
  4. METFORMIN HCL [Concomitant]
     Indication: DIABETES MELLITUS
  5. ATENOLOL [Concomitant]
     Indication: HYPERTENSION

REACTIONS (1)
  - OSTEONECROSIS [None]
